FAERS Safety Report 23063674 (Version 2)
Quarter: 2023Q4

REPORT INFORMATION
  Report Type: Spontaneous
  Country: None (occurrence: GB)
  Receive Date: 20231013
  Receipt Date: 20231023
  Transmission Date: 20240109
  Serious: Yes (Disabling)
  Sender: FDA-Public Use
  Company Number: GB-Delcath Systems-2147069

PATIENT
  Age: 66 Year
  Sex: Male

DRUGS (8)
  1. MELPHALAN [Suspect]
     Active Substance: MELPHALAN
     Indication: Uveal melanoma
     Route: 025
     Dates: start: 20230918, end: 20230918
  2. TEBENTAFUSP [Interacting]
     Active Substance: TEBENTAFUSP
     Dates: start: 20230910, end: 20230910
  3. ISOPROTERENOL HYDROCHLORIDE [Concomitant]
     Active Substance: ISOPROTERENOL HYDROCHLORIDE
  4. ADRENALIN [Concomitant]
     Active Substance: EPINEPHRINE
  5. AMIODARONE HYDROCHLORIDE [Concomitant]
     Active Substance: AMIODARONE HYDROCHLORIDE
  6. ATROPINE [Concomitant]
     Active Substance: ATROPINE
  7. NOREPINEPHRINE [Concomitant]
     Active Substance: NOREPINEPHRINE
  8. PROTAMINE [Concomitant]
     Active Substance: PROTAMINE
     Dates: start: 20230918, end: 20230918

REACTIONS (1)
  - Delayed ischaemic neurological deficit [Recovered/Resolved with Sequelae]

NARRATIVE: CASE EVENT DATE: 20230927
